FAERS Safety Report 23610553 (Version 2)
Quarter: 2024Q1

REPORT INFORMATION
  Report Type: Report from Study
  Country: US (occurrence: US)
  Receive Date: 20240308
  Receipt Date: 20240311
  Transmission Date: 20240410
  Serious: No
  Sender: FDA-Public Use
  Company Number: US-ABBVIE-5669910

PATIENT
  Age: 33 Year
  Sex: Male
  Weight: 68 kg

DRUGS (2)
  1. RINVOQ [Suspect]
     Active Substance: UPADACITINIB
     Indication: Colitis ulcerative
     Dosage: FORM STRENGTH: 45 MG
     Route: 048
     Dates: start: 20240210
  2. RINVOQ [Suspect]
     Active Substance: UPADACITINIB
     Indication: Colitis ulcerative
     Dosage: LAST ADMIN DATE- FEB 2024
     Route: 048
     Dates: start: 20240206

REACTIONS (2)
  - Semen discolouration [Recovered/Resolved]
  - Semen discolouration [Not Recovered/Not Resolved]

NARRATIVE: CASE EVENT DATE: 20240201
